FAERS Safety Report 18858074 (Version 1)
Quarter: 2021Q1

REPORT INFORMATION
  Report Type: Spontaneous
  Country: JO (occurrence: JO)
  Receive Date: 20210208
  Receipt Date: 20210208
  Transmission Date: 20210420
  Serious: Yes (Hospitalization, Other)
  Sender: FDA-Public Use
  Company Number: JO-ALVOGEN-2021-ALVOGEN-116439

PATIENT
  Age: 63 Year
  Sex: Male

DRUGS (1)
  1. DOXORUBICIN [Suspect]
     Active Substance: DOXORUBICIN
     Indication: BLADDER CANCER
     Dosage: 50 ML OF DOXORUBICIN DILUTED IN 100 CC OF SALINE
     Route: 043

REACTIONS (8)
  - Pollakiuria [Recovered/Resolved]
  - Micturition urgency [Recovered/Resolved]
  - Extravasation of urine [Recovered/Resolved]
  - Fat necrosis [Recovered/Resolved]
  - Bladder perforation [Recovered/Resolved]
  - Dystrophic calcification [Recovered/Resolved]
  - Impaired healing [Recovered/Resolved]
  - Dysuria [Recovered/Resolved]
